FAERS Safety Report 13124538 (Version 2)
Quarter: 2017Q1

REPORT INFORMATION
  Report Type: Spontaneous
  Country: US (occurrence: US)
  Receive Date: 20170118
  Receipt Date: 20170224
  Transmission Date: 20170428
  Serious: No
  Sender: FDA-Public Use
  Company Number: US-PFIZER INC-2017022070

PATIENT
  Sex: Female

DRUGS (1)
  1. XELJANZ XR [Suspect]
     Active Substance: TOFACITINIB CITRATE
     Dosage: 11 MG, 1X/DAY ONCE DAILY
     Route: 048
     Dates: start: 20161101

REACTIONS (12)
  - Fatigue [Unknown]
  - Paraesthesia [Unknown]
  - Musculoskeletal stiffness [Recovering/Resolving]
  - Rheumatoid nodule [Unknown]
  - Inflammatory marker increased [Unknown]
  - Arthralgia [Recovering/Resolving]
  - Joint stiffness [Unknown]
  - Anal haemorrhage [Unknown]
  - Herpes zoster [Unknown]
  - Synovial cyst [Unknown]
  - Haemorrhoids [Unknown]
  - Joint swelling [Unknown]
